FAERS Safety Report 22616990 (Version 1)
Quarter: 2023Q2

REPORT INFORMATION
  Report Type: Report from Study
  Country: US (occurrence: US)
  Receive Date: 20230620
  Receipt Date: 20230620
  Transmission Date: 20230722
  Serious: Yes (Other)
  Sender: FDA-Public Use
  Company Number: US-ABBVIE-5294601

PATIENT
  Sex: Female

DRUGS (2)
  1. SKYRIZI [Suspect]
     Active Substance: RISANKIZUMAB-RZAA
     Indication: Crohn^s disease
     Dosage: FORM STRENGTH: 360 MG?LAST ADMIN DATE: 2023
     Route: 058
     Dates: start: 20230328
  2. SKYRIZI [Suspect]
     Active Substance: RISANKIZUMAB-RZAA
     Dosage: FORM STRENGTH: 360 MG
     Route: 058
     Dates: start: 20230523

REACTIONS (10)
  - Shoulder arthroplasty [Unknown]
  - Diarrhoea [Unknown]
  - Haematochezia [Unknown]
  - Fatigue [Unknown]
  - Periodontal disease [Unknown]
  - Frequent bowel movements [Unknown]
  - Flatulence [Unknown]
  - Bowel movement irregularity [Unknown]
  - Asthenia [Unknown]
  - Faeces soft [Unknown]

NARRATIVE: CASE EVENT DATE: 20230101
